FAERS Safety Report 11687672 (Version 1)
Quarter: 2015Q4

REPORT INFORMATION
  Report Type: Spontaneous
  Country: KR (occurrence: KR)
  Receive Date: 20151030
  Receipt Date: 20151030
  Transmission Date: 20160304
  Serious: Yes (Hospitalization)
  Sender: FDA-Public Use
  Company Number: KR-ABBVIE-15P-090-1487596-00

PATIENT
  Age: 69 Year
  Sex: Female

DRUGS (15)
  1. LIPIDIL SUPRA [Concomitant]
     Indication: PRODUCT USED FOR UNKNOWN INDICATION
     Dates: start: 20120529, end: 20130820
  2. NORVIR [Suspect]
     Active Substance: RITONAVIR
     Route: 065
     Dates: start: 20150820, end: 20150920
  3. KIVEXA [Concomitant]
     Active Substance: ABACAVIR SULFATE\LAMIVUDINE
     Dates: start: 20150510, end: 20150719
  4. KIVEXA [Concomitant]
     Active Substance: ABACAVIR SULFATE\LAMIVUDINE
     Dates: start: 20150820, end: 20150920
  5. REYATAZ [Suspect]
     Active Substance: ATAZANAVIR SULFATE
     Indication: PRODUCT USED FOR UNKNOWN INDICATION
     Route: 065
     Dates: start: 20081127
  6. RHINATHIOL [Concomitant]
     Indication: PRODUCT USED FOR UNKNOWN INDICATION
     Dates: start: 20090807, end: 20130820
  7. GANATON [Concomitant]
     Active Substance: ITOPRIDE
     Indication: PRODUCT USED FOR UNKNOWN INDICATION
     Dates: start: 20090807, end: 20130820
  8. NORVIR [Suspect]
     Active Substance: RITONAVIR
     Indication: PRODUCT USED FOR UNKNOWN INDICATION
     Route: 065
     Dates: start: 20081127, end: 20141111
  9. AMITRIPTYLINE [Concomitant]
     Active Substance: AMITRIPTYLINE
     Indication: PRODUCT USED FOR UNKNOWN INDICATION
     Dates: start: 20091009, end: 20130820
  10. KIVEXA [Concomitant]
     Active Substance: ABACAVIR SULFATE\LAMIVUDINE
     Indication: PRODUCT USED FOR UNKNOWN INDICATION
     Dates: start: 20130520, end: 20130820
  11. KIVEXA [Concomitant]
     Active Substance: ABACAVIR SULFATE\LAMIVUDINE
     Dates: start: 20130924, end: 20141111
  12. NORVIR [Suspect]
     Active Substance: RITONAVIR
     Route: 065
     Dates: start: 20150105, end: 20150405
  13. NORVIR [Suspect]
     Active Substance: RITONAVIR
     Route: 065
     Dates: start: 20150519, end: 20150719
  14. ASPIRIN. [Concomitant]
     Active Substance: ASPIRIN
     Indication: PRODUCT USED FOR UNKNOWN INDICATION
     Dates: start: 20070810, end: 20130820
  15. KIVEXA [Concomitant]
     Active Substance: ABACAVIR SULFATE\LAMIVUDINE
     Dates: start: 20150105, end: 20150405

REACTIONS (3)
  - Vascular dementia [Recovered/Resolved]
  - Asthenia [Unknown]
  - Decreased appetite [Unknown]

NARRATIVE: CASE EVENT DATE: 20130805
